FAERS Safety Report 4582180-0 (Version None)
Quarter: 2005Q1

REPORT INFORMATION
  Report Type: 
  Country: None (occurrence: None)
  Receive Date: 20050210
  Receipt Date: 20050126
  Transmission Date: 20050727
  Serious: Yes (Death, Hospitalization)
  Sender: FDA-Public Use
  Company Number: 2004AL000868

PATIENT
  Age: 43 Year
  Sex: Male

DRUGS (3)
  1. CLONAZEPAM [Suspect]
     Dosage: PO
     Route: 048
  2. CARISOPRODOL [Suspect]
     Dosage: PO
     Route: 048
  3. ACETAMINOPHEN AND HYDROCODONE BITARTRATE [Suspect]
     Dosage: PO
     Route: 048

REACTIONS (10)
  - CARDIAC ARREST [None]
  - CARDIO-RESPIRATORY ARREST [None]
  - CEREBRAL DISORDER [None]
  - COMA [None]
  - COMPLETED SUICIDE [None]
  - HEART RATE INCREASED [None]
  - MULTIPLE DRUG OVERDOSE [None]
  - PUPIL FIXED [None]
  - RESPIRATORY ARREST [None]
  - THERAPY NON-RESPONDER [None]
